FAERS Safety Report 12647592 (Version 1)
Quarter: 2016Q3

REPORT INFORMATION
  Report Type: Spontaneous
  Country: JP (occurrence: JP)
  Receive Date: 20160812
  Receipt Date: 20160812
  Transmission Date: 20161109
  Serious: Yes (Hospitalization, Other)
  Sender: FDA-Public Use
  Company Number: JP-MYLANLABS-2016M1033448

PATIENT

DRUGS (8)
  1. MAGLAX [Suspect]
     Active Substance: MAGNESIUM OXIDE
     Indication: CONSTIPATION
     Dosage: 1000 MG/DAY
     Route: 065
  2. OLANZAPINE. [Suspect]
     Active Substance: OLANZAPINE
     Indication: SCHIZOPHRENIA
     Route: 065
  3. RAMELTEON [Concomitant]
     Active Substance: RAMELTEON
     Indication: SCHIZOPHRENIA
     Route: 065
  4. UBRETID [Suspect]
     Active Substance: DISTIGMINE BROMIDE
     Indication: URINARY TRACT DISORDER
     Dosage: 10 MG/DAY
     Route: 065
  5. TANDOSPIRONE [Concomitant]
     Active Substance: TANDOSPIRONE
     Indication: SCHIZOPHRENIA
     Route: 065
  6. BIPERIDEN [Concomitant]
     Active Substance: BIPERIDEN
     Indication: SCHIZOPHRENIA
     Route: 065
  7. QUAZEPAM. [Concomitant]
     Active Substance: QUAZEPAM
     Indication: SCHIZOPHRENIA
     Route: 065
  8. QUETIAPINE. [Suspect]
     Active Substance: QUETIAPINE
     Indication: SCHIZOPHRENIA
     Route: 065

REACTIONS (5)
  - Cholinergic syndrome [Recovering/Resolving]
  - Hypermagnesaemia [Unknown]
  - Pneumonia aspiration [Unknown]
  - Constipation [Unknown]
  - Acute respiratory failure [Unknown]
